FAERS Safety Report 5238016-8 (Version None)
Quarter: 2007Q1

REPORT INFORMATION
  Report Type: 
  Country: None (occurrence: None)
  Receive Date: 20070214
  Receipt Date: 20070202
  Transmission Date: 20070707
  Serious: Yes (Other)
  Sender: FDA-Public Use
  Company Number: DE-PFIZER INC-2007009656

PATIENT
  Sex: Male

DRUGS (3)
  1. CLINDAMYCIN HCL [Suspect]
     Indication: INFECTION PROPHYLAXIS
     Route: 048
  2. MUTAFLOR [Concomitant]
     Route: 048
     Dates: start: 20070131, end: 20070131
  3. VOLTAREN [Concomitant]
     Route: 048
     Dates: start: 20070131, end: 20070131

REACTIONS (3)
  - FEELING COLD [None]
  - HEMIPLEGIA [None]
  - PARAESTHESIA [None]
